FAERS Safety Report 18274172 (Version 1)
Quarter: 2020Q3

REPORT INFORMATION
  Report Type: Spontaneous
  Country: DE (occurrence: DE)
  Receive Date: 20200916
  Receipt Date: 20200916
  Transmission Date: 20201103
  Serious: Yes (Hospitalization, Other)
  Sender: FDA-Public Use
  Company Number: DE-ASTRAZENECA-2020SF15196

PATIENT
  Age: 17 Year
  Sex: Female
  Weight: 36 kg

DRUGS (3)
  1. PROTHAZIN [Suspect]
     Active Substance: PROMETHAZINE HYDROCHLORIDE
     Indication: PSYCHOTIC DISORDER
     Dosage: 0?0?0?50
     Route: 048
  2. QUETIAPIN [Suspect]
     Active Substance: QUETIAPINE
     Indication: SUICIDAL IDEATION
     Dosage: DAILY DOSE: 1750 MG MILLGRAM(S) EVERY DAYS 35 SEPARATED DOSES
     Route: 048
     Dates: end: 20190217
  3. DIPIPERON [Suspect]
     Active Substance: PIPAMPERONE
     Indication: PSYCHOTIC DISORDER
     Dosage: 30?30?40
     Route: 048

REACTIONS (3)
  - Toxicity to various agents [Unknown]
  - Suicide attempt [Recovering/Resolving]
  - Intentional overdose [Unknown]

NARRATIVE: CASE EVENT DATE: 20190217
